FAERS Safety Report 4607523-0 (Version None)
Quarter: 2005Q1

REPORT INFORMATION
  Report Type: 
  Country: None (occurrence: None)
  Receive Date: 20050309
  Receipt Date: 20050224
  Transmission Date: 20050727
  Serious: Yes (Other)
  Sender: FDA-Public Use
  Company Number: 2005VX000192

PATIENT
  Age: 55 Year
  Sex: Male
  Weight: 70 kg

DRUGS (1)
  1. VIRAZOLE [Suspect]
     Indication: ADENOVIRUS INFECTION
     Dosage: 350 MG; 3 TIMES A DAY; INTRAVENOUS
     Route: 042
     Dates: start: 20041215, end: 20041215

REACTIONS (1)
  - SUPRAVENTRICULAR TACHYCARDIA [None]
